FAERS Safety Report 7435267-9 (Version None)
Quarter: 2011Q2

REPORT INFORMATION
  Report Type: 
  Country: None (occurrence: None)
  Receive Date: 20110425
  Receipt Date: 20110404
  Transmission Date: 20111010
  Serious: Yes (Hospitalization)
  Sender: FDA-Public Use
  Company Number: PHFR2011GB01646

PATIENT
  Sex: Male

DRUGS (3)
  1. RISPERIDONE [Concomitant]
     Indication: SCHIZOPHRENIA
     Dosage: UNK DF, UNK
  2. VALPROATE SODIUM [Concomitant]
     Dosage: UNK DF, UNK
  3. CLOZARIL [Suspect]
     Indication: SCHIZOPHRENIA
     Dosage: UNK MG, UNK
     Route: 048
     Dates: start: 20021125

REACTIONS (6)
  - BLOOD CREATINE PHOSPHOKINASE INCREASED [None]
  - NEUTROPHIL COUNT INCREASED [None]
  - CONVULSION [None]
  - PSORIASIS [None]
  - BLOOD DISORDER [None]
  - WHITE BLOOD CELL COUNT INCREASED [None]
